FAERS Safety Report 24319974 (Version 1)
Quarter: 2024Q3

REPORT INFORMATION
  Report Type: Spontaneous
  Country: US (occurrence: US)
  Receive Date: 20240914
  Receipt Date: 20240914
  Transmission Date: 20241017
  Serious: No
  Sender: MERCK
  Company Number: US-009507513-2408USA009093

PATIENT
  Sex: Male
  Weight: 73.5 kg

DRUGS (10)
  1. WINREVAIR [Suspect]
     Active Substance: SOTATERCEPT-CSRK
     Indication: Product used for unknown indication
     Dosage: 0.3 MILLIGRAM/KILOGRAM
     Dates: start: 2024
  2. REMODULIN [Suspect]
     Active Substance: TREPROSTINIL
     Indication: Pulmonary arterial hypertension
     Dosage: 0.108 MICROGRAM PER KILOGRAM, FREQUENCY CONTINUOUS
     Route: 058
     Dates: start: 20150309
  3. ASPIRIN [Concomitant]
     Active Substance: ASPIRIN
  4. POTASSIUM CHLORIDE [Concomitant]
     Active Substance: POTASSIUM CHLORIDE
  5. OPSUMIT [Concomitant]
     Active Substance: MACITENTAN
  6. METOPROLOL SUCCINATE [Concomitant]
     Active Substance: METOPROLOL SUCCINATE
  7. DIGOXIN [Concomitant]
     Active Substance: DIGOXIN
  8. ADCIRCA [Concomitant]
     Active Substance: TADALAFIL
  9. FUROSEMIDE [Concomitant]
     Active Substance: FUROSEMIDE
  10. OXYCODONE AND ACETAMINOPHEN [Concomitant]
     Active Substance: ACETAMINOPHEN\OXYCODONE HYDROCHLORIDE

REACTIONS (1)
  - Platelet count decreased [Unknown]

NARRATIVE: CASE EVENT DATE: 20240101
